FAERS Safety Report 18264148 (Version 1)
Quarter: 2020Q3

REPORT INFORMATION
  Report Type: Spontaneous
  Country: BR (occurrence: BR)
  Receive Date: 20200914
  Receipt Date: 20200914
  Transmission Date: 20201103
  Serious: Yes (Death, Hospitalization)
  Sender: FDA-Public Use
  Company Number: BR-ANTARES PHARMA, INC.-2020-LIT-ME-0623

PATIENT

DRUGS (3)
  1. METHOTREXATE. [Suspect]
     Active Substance: METHOTREXATE
     Indication: DERMATOMYOSITIS
     Dosage: UNK, UNKNOWN
     Route: 058
  2. METHYLPREDNISOLONE. [Suspect]
     Active Substance: METHYLPREDNISOLONE
     Indication: DERMATOMYOSITIS
     Dosage: UNK, UNKNOWN
     Route: 042
  3. METHOTREXATE. [Suspect]
     Active Substance: METHOTREXATE
     Indication: PRODUCT USE IN UNAPPROVED INDICATION

REACTIONS (11)
  - Cough [Fatal]
  - Respiratory distress [Fatal]
  - Hypoxia [Fatal]
  - Product use in unapproved indication [Unknown]
  - Leukopenia [Unknown]
  - Pneumomediastinum [Fatal]
  - Pneumothorax [Fatal]
  - Emphysema [Fatal]
  - Shock [Fatal]
  - Dermatomyositis [Fatal]
  - Lung consolidation [Fatal]
